FAERS Safety Report 9858083 (Version 3)
Quarter: 2014Q2

REPORT INFORMATION
  Report Type: Spontaneous
  Country: GB (occurrence: GB)
  Receive Date: 20140131
  Receipt Date: 20140418
  Transmission Date: 20141212
  Serious: Yes (Hospitalization)
  Sender: FDA-Public Use
  Company Number: PHFR2014GB001097

PATIENT
  Sex: Male

DRUGS (4)
  1. CLOZARIL [Suspect]
     Dosage: UNK
     Route: 048
     Dates: start: 20021107
  2. SODIUM VALPROATE [Concomitant]
     Indication: AFFECTIVE DISORDER
     Dosage: 500 MG, DAILY
     Route: 048
  3. AMISULPRIDE [Concomitant]
     Indication: PROPHYLAXIS
     Dosage: 200 MG, DAILY
     Route: 048
  4. HYDROCORTISONE [Concomitant]
     Indication: CEREBRAL CYST
     Dosage: UNK
     Route: 048

REACTIONS (1)
  - Mental disorder [Unknown]
